FAERS Safety Report 7534682-2 (Version None)
Quarter: 2011Q2

REPORT INFORMATION
  Report Type: 
  Country: None (occurrence: None)
  Receive Date: 20110609
  Receipt Date: 20110407
  Transmission Date: 20111010
  Serious: Yes (Death, Hospitalization, Other)
  Sender: FDA-Public Use
  Company Number: PHHY2011US05821

PATIENT
  Sex: Female

DRUGS (2)
  1. ZORTRESS [Suspect]
     Dosage: 1 MG, BID
     Dates: start: 20110107
  2. ZORTRESS [Suspect]
     Dosage: 0.75 MG, BID
     Dates: start: 20101119, end: 20110107

REACTIONS (2)
  - DEATH [None]
  - PNEUMONIA [None]
